FAERS Safety Report 19145906 (Version 11)
Quarter: 2023Q1

REPORT INFORMATION
  Report Type: Report from Study
  Country: DE (occurrence: None)
  Receive Date: 20210416
  Receipt Date: 20230307
  Transmission Date: 20230418
  Serious: Yes (Hospitalization)
  Sender: FDA-Public Use
  Company Number: DE-ROCHE-2806142

PATIENT
  Age: 66 Year
  Sex: Female
  Weight: 120 kg

DRUGS (28)
  1. ATEZOLIZUMAB [Suspect]
     Active Substance: ATEZOLIZUMAB
     Indication: Triple negative breast cancer
     Dosage: ON 08/DEC/2020, THE PATIENT RECEIVED MOST RECENT DOSE 840 MG PRIOR TO AE.?ON 23/MAR/2021, THE PATIEN
     Route: 041
     Dates: start: 20201208
  2. TIRAGOLUMAB [Suspect]
     Active Substance: TIRAGOLUMAB
     Indication: Triple negative breast cancer
     Dosage: ON 08/DEC/2020, THE PATIENT RECEIVED MOST RECENT DOSE 420 MG PRIOR TO AE.?ON 23/MAR/2021, THE PATIEN
     Route: 042
     Dates: start: 20201208
  3. PACLITAXEL [Suspect]
     Active Substance: PACLITAXEL
     Indication: Triple negative breast cancer
     Dosage: ON15/DEC/2020, THE PATIENT RECEIVED MOST RECENT DOSE 272.5 MG PRIOR TO AE.?ON 16/FEB/2021,THE PATIEN
     Route: 042
     Dates: start: 20201208
  4. DOXORUBICIN [Suspect]
     Active Substance: DOXORUBICIN
     Indication: Triple negative breast cancer
     Dosage: ON 23/MAR/2021, THE PATIENT RECEIVED MOST RECENT DOSE 131 MG PRIOR TO SAE.
     Route: 042
     Dates: start: 20210309
  5. CYCLOPHOSPHAMIDE [Suspect]
     Active Substance: CYCLOPHOSPHAMIDE
     Indication: Triple negative breast cancer
     Dosage: ON 23/MAR/2021, THE PATIENT RECEIVED MOST RECENT DOSE 1300 MG PRIOR TO SAE.
     Route: 042
     Dates: start: 20210309
  6. NETUPITANT [Concomitant]
     Active Substance: NETUPITANT
     Indication: Prophylaxis
     Route: 048
     Dates: start: 20210309, end: 20210309
  7. NETUPITANT [Concomitant]
     Active Substance: NETUPITANT
     Dates: start: 20210323, end: 20210323
  8. PALONOSETRON [Concomitant]
     Active Substance: PALONOSETRON
     Indication: Prophylaxis
     Route: 048
     Dates: start: 20210309, end: 20210309
  9. PALONOSETRON [Concomitant]
     Active Substance: PALONOSETRON
     Dates: start: 20210323, end: 20210323
  10. DEXAMETHASONE [Concomitant]
     Active Substance: DEXAMETHASONE
     Indication: Prophylaxis
     Route: 042
     Dates: start: 20210309, end: 20210309
  11. DEXAMETHASONE [Concomitant]
     Active Substance: DEXAMETHASONE
     Route: 042
     Dates: start: 20210323, end: 20210323
  12. MESNA [Concomitant]
     Active Substance: MESNA
     Indication: Prophylaxis
     Route: 042
     Dates: start: 20210309, end: 20210309
  13. MESNA [Concomitant]
     Active Substance: MESNA
     Route: 048
     Dates: start: 20210309, end: 20210309
  14. MESNA [Concomitant]
     Active Substance: MESNA
     Route: 042
     Dates: start: 20210323, end: 20210323
  15. MESNA [Concomitant]
     Active Substance: MESNA
     Route: 048
     Dates: start: 20210323, end: 20210323
  16. LIPEGFILGRASTIM [Concomitant]
     Active Substance: LIPEGFILGRASTIM
     Dosage: 6 BEATS/MIN
     Route: 058
     Dates: start: 20210324
  17. LIPEGFILGRASTIM [Concomitant]
     Active Substance: LIPEGFILGRASTIM
     Dosage: 6 BEATS/MIN
     Route: 058
     Dates: start: 20210310
  18. PEGFILGRASTIM [Concomitant]
     Active Substance: PEGFILGRASTIM
     Dosage: 6 BEATS/MIN
     Route: 058
     Dates: start: 20210310
  19. LEVOTHYROXINE SODIUM [Concomitant]
     Active Substance: LEVOTHYROXINE SODIUM
     Indication: Autoimmune thyroiditis
     Route: 048
     Dates: start: 1990
  20. NOVALGIN (METAMIZOLE SODIUM) [Concomitant]
     Active Substance: METAMIZOLE SODIUM
     Indication: Muscle spasms
     Route: 042
     Dates: start: 20201229, end: 20201229
  21. NOVALGIN (METAMIZOLE SODIUM) [Concomitant]
     Active Substance: METAMIZOLE SODIUM
     Indication: Pain
     Route: 042
     Dates: start: 20210119, end: 20210119
  22. NOVALGIN (METAMIZOLE SODIUM) [Concomitant]
     Active Substance: METAMIZOLE SODIUM
     Route: 042
     Dates: start: 20210402, end: 20210406
  23. PANTOZOL [Concomitant]
     Active Substance: PANTOPRAZOLE SODIUM
     Indication: Prophylaxis
     Route: 048
     Dates: start: 20210402, end: 20210406
  24. CIPROHEXAL [Concomitant]
     Indication: Stomatitis
     Route: 048
     Dates: start: 20210401, end: 20210406
  25. HYDROMORPHONE [Concomitant]
     Active Substance: HYDROMORPHONE
     Indication: Pain
     Route: 065
     Dates: start: 20210403, end: 20210407
  26. AMOXICILLIN\CLAVULANATE POTASSIUM [Concomitant]
     Active Substance: AMOXICILLIN\CLAVULANATE POTASSIUM
     Indication: Stomatitis
     Route: 048
     Dates: start: 20210401, end: 20210406
  27. METOCLOPRAMIDE [Concomitant]
     Active Substance: METOCLOPRAMIDE
     Indication: Nausea
     Route: 048
     Dates: start: 20210405, end: 20210406
  28. IBUPROFEN [Concomitant]
     Active Substance: IBUPROFEN
     Indication: Pain
     Route: 048
     Dates: start: 20210401, end: 20210406

REACTIONS (1)
  - Candida infection [Recovered/Resolved]

NARRATIVE: CASE EVENT DATE: 20201220
